FAERS Safety Report 11588377 (Version 1)
Quarter: 2015Q4

REPORT INFORMATION
  Report Type: Spontaneous
  Country: US (occurrence: US)
  Receive Date: 20151002
  Receipt Date: 20151002
  Transmission Date: 20160304
  Serious: No
  Sender: FDA-Public Use
  Company Number: US-ACCORD-032560

PATIENT
  Age: 48 Year
  Sex: Female

DRUGS (3)
  1. CAMRESE [Concomitant]
     Active Substance: ETHINYL ESTRADIOL\LEVONORGESTREL
  2. AMLODIPINE [Concomitant]
     Active Substance: AMLODIPINE BESYLATE
  3. ESCITALOPRAM ACCORD [Suspect]
     Active Substance: ESCITALOPRAM OXALATE
     Indication: DEPRESSION
     Dates: start: 20150712, end: 20150721

REACTIONS (10)
  - Irritability [Recovering/Resolving]
  - Product substitution issue [Unknown]
  - Myalgia [Recovering/Resolving]
  - Arthralgia [Recovering/Resolving]
  - Fatigue [Recovering/Resolving]
  - Pain [Recovering/Resolving]
  - Crying [Recovering/Resolving]
  - No therapeutic response [Unknown]
  - Feeling abnormal [Recovering/Resolving]
  - Anger [Recovering/Resolving]
